FAERS Safety Report 15751681 (Version 2)
Quarter: 2019Q3

REPORT INFORMATION
  Report Type: Spontaneous
  Country: DE (occurrence: DE)
  Receive Date: 20181221
  Receipt Date: 20190704
  Transmission Date: 20191004
  Serious: Yes (Hospitalization, Other)
  Sender: FDA-Public Use
  Company Number: DE-IPSEN BIOPHARMACEUTICALS, INC.-2018-19563

PATIENT
  Age: 82 Year
  Sex: Male
  Weight: 78 kg

DRUGS (51)
  1. ONIVYDE [Suspect]
     Active Substance: IRINOTECAN HYDROCHLORIDE
     Route: 065
  2. ONIVYDE [Suspect]
     Active Substance: IRINOTECAN HYDROCHLORIDE
     Route: 065
  3. FLUOROURACIL. [Suspect]
     Active Substance: FLUOROURACIL
     Route: 042
  4. PANITUMUMAB [Suspect]
     Active Substance: PANITUMUMAB
     Route: 042
  5. FOLINIC ACID [Suspect]
     Active Substance: LEUCOVORIN
     Route: 065
  6. FOLINIC ACID [Suspect]
     Active Substance: LEUCOVORIN
     Route: 065
  7. FOLINIC ACID [Suspect]
     Active Substance: LEUCOVORIN
     Route: 065
  8. ASS-RATIOPHARM [Concomitant]
     Active Substance: ASPIRIN
     Indication: THROMBOSIS PROPHYLAXIS
     Route: 048
     Dates: start: 20171016
  9. ONIVYDE [Suspect]
     Active Substance: IRINOTECAN HYDROCHLORIDE
     Indication: OFF LABEL USE
     Route: 065
  10. FLUOROURACIL. [Suspect]
     Active Substance: FLUOROURACIL
     Route: 042
  11. FOLINIC ACID [Suspect]
     Active Substance: LEUCOVORIN
     Route: 065
  12. ONIVYDE [Suspect]
     Active Substance: IRINOTECAN HYDROCHLORIDE
     Route: 065
  13. ONIVYDE [Suspect]
     Active Substance: IRINOTECAN HYDROCHLORIDE
     Route: 065
  14. PANITUMUMAB [Suspect]
     Active Substance: PANITUMUMAB
     Route: 042
  15. ONIVYDE [Suspect]
     Active Substance: IRINOTECAN HYDROCHLORIDE
     Route: 065
  16. FLUOROURACIL. [Suspect]
     Active Substance: FLUOROURACIL
     Route: 042
  17. PANITUMUMAB [Suspect]
     Active Substance: PANITUMUMAB
     Indication: COLORECTAL CANCER METASTATIC
     Route: 042
  18. FOLINIC ACID [Suspect]
     Active Substance: LEUCOVORIN
     Indication: COLORECTAL CANCER METASTATIC
     Route: 065
  19. FOLINIC ACID [Suspect]
     Active Substance: LEUCOVORIN
     Route: 065
  20. FOLINIC ACID [Suspect]
     Active Substance: LEUCOVORIN
     Route: 065
  21. DERMATOP [Concomitant]
     Active Substance: PREDNICARBATE
     Route: 061
  22. L-THYROXIN [Concomitant]
     Active Substance: LEVOTHYROXINE SODIUM
     Indication: HYPOTHYROIDISM
     Route: 048
     Dates: start: 19990101
  23. ONIVYDE [Suspect]
     Active Substance: IRINOTECAN HYDROCHLORIDE
     Indication: COLORECTAL CANCER METASTATIC
     Route: 065
  24. FLUOROURACIL. [Suspect]
     Active Substance: FLUOROURACIL
     Route: 042
  25. FLUOROURACIL. [Suspect]
     Active Substance: FLUOROURACIL
     Route: 042
  26. FLUOROURACIL. [Suspect]
     Active Substance: FLUOROURACIL
     Route: 042
  27. FLUOROURACIL. [Suspect]
     Active Substance: FLUOROURACIL
     Route: 042
  28. PANITUMUMAB [Suspect]
     Active Substance: PANITUMUMAB
     Route: 042
  29. ONDANSETRON B BRAUN [Concomitant]
     Indication: NAUSEA
     Dosage: ( 8 MG PER CYCLE (2 MG/ML) AND 8 MG PRN (AS NEEDED) (4 MG/8 MG)
  30. DOXYDERMA [Concomitant]
     Dates: start: 20171017
  31. LOPERAMIDE HYDROCHLORIDE. [Concomitant]
     Active Substance: LOPERAMIDE HYDROCHLORIDE
     Indication: DIARRHOEA
     Route: 048
  32. ONIVYDE [Suspect]
     Active Substance: IRINOTECAN HYDROCHLORIDE
     Route: 065
  33. FLUOROURACIL. [Suspect]
     Active Substance: FLUOROURACIL
     Route: 042
  34. FLUOROURACIL. [Suspect]
     Active Substance: FLUOROURACIL
     Route: 042
  35. FOLINIC ACID [Suspect]
     Active Substance: LEUCOVORIN
     Route: 065
  36. FLUOROURACIL. [Suspect]
     Active Substance: FLUOROURACIL
     Indication: COLORECTAL CANCER METASTATIC
     Route: 042
  37. FLUOROURACIL. [Suspect]
     Active Substance: FLUOROURACIL
     Route: 042
  38. FLUOROURACIL. [Suspect]
     Active Substance: FLUOROURACIL
     Route: 042
  39. FLUOROURACIL. [Suspect]
     Active Substance: FLUOROURACIL
     Route: 042
  40. PANITUMUMAB [Suspect]
     Active Substance: PANITUMUMAB
     Route: 042
  41. BISOPROLOL [Concomitant]
     Active Substance: BISOPROLOL
     Indication: HYPERTENSION
     Dates: start: 20010101
  42. DEXAMETHASON JENAPHARM [Concomitant]
     Active Substance: DEXAMETHASONE
     Indication: NAUSEA
     Dosage: PER CYCLE
     Route: 042
  43. SIMVASTATIN-RATIOPHARM [Concomitant]
     Active Substance: SIMVASTATIN
     Indication: IMMUNE SYSTEM DISORDER
     Route: 048
     Dates: start: 20170901
  44. FLUOROURACIL. [Suspect]
     Active Substance: FLUOROURACIL
     Route: 042
  45. FLUOROURACIL. [Suspect]
     Active Substance: FLUOROURACIL
     Route: 042
  46. FLUOROURACIL. [Suspect]
     Active Substance: FLUOROURACIL
     Route: 042
  47. FLUOROURACIL. [Suspect]
     Active Substance: FLUOROURACIL
     Route: 042
  48. PANITUMUMAB [Suspect]
     Active Substance: PANITUMUMAB
     Route: 042
  49. PANITUMUMAB [Suspect]
     Active Substance: PANITUMUMAB
     Route: 042
  50. PANITUMUMAB [Suspect]
     Active Substance: PANITUMUMAB
     Route: 042
  51. FOLINIC ACID [Suspect]
     Active Substance: LEUCOVORIN
     Route: 065

REACTIONS (1)
  - Pulmonary embolism [Not Recovered/Not Resolved]
